FAERS Safety Report 14325808 (Version 11)
Quarter: 2018Q3

REPORT INFORMATION
  Report Type: Report from Study
  Country: US (occurrence: US)
  Receive Date: 20171226
  Receipt Date: 20180827
  Transmission Date: 20181010
  Serious: Yes (Hospitalization)
  Sender: FDA-Public Use
  Company Number: US-ACTELION-A-US2017-164440

PATIENT
  Age: 64 Year
  Sex: Female

DRUGS (5)
  1. UPTRAVI [Suspect]
     Active Substance: SELEXIPAG
     Dosage: 1400 MCG, BID
     Route: 048
  2. UPTRAVI [Suspect]
     Active Substance: SELEXIPAG
     Dosage: 400 MCG, BID
     Route: 048
     Dates: start: 20171128
  3. UPTRAVI [Suspect]
     Active Substance: SELEXIPAG
     Dosage: 600 MCG, BID
     Route: 048
  4. UPTRAVI [Suspect]
     Active Substance: SELEXIPAG
     Dosage: 1000 MCG, BID
     Route: 048
  5. UPTRAVI [Suspect]
     Active Substance: SELEXIPAG
     Indication: PULMONARY ARTERIAL HYPERTENSION
     Dosage: 1600 MCG, BID
     Route: 048
     Dates: start: 20171129

REACTIONS (22)
  - Crying [Unknown]
  - Blood glucose abnormal [Unknown]
  - Drug dose omission [Unknown]
  - Oxygen therapy [Unknown]
  - Palpitations [Unknown]
  - Unresponsive to stimuli [Unknown]
  - Dyspnoea [Unknown]
  - Myalgia [Unknown]
  - Pruritus generalised [Unknown]
  - Pneumonia [Unknown]
  - Arthralgia [Unknown]
  - Bone pain [Unknown]
  - Diarrhoea [Unknown]
  - Chest discomfort [Unknown]
  - Weight increased [Unknown]
  - Malaise [Unknown]
  - Pain in jaw [Unknown]
  - Pain in extremity [Unknown]
  - Fatigue [Unknown]
  - Influenza [Unknown]
  - Feeling abnormal [Unknown]
  - Dyspnoea exertional [Unknown]

NARRATIVE: CASE EVENT DATE: 20171211
